FAERS Safety Report 5970959-X (Version None)
Quarter: 2008Q4

REPORT INFORMATION
  Report Type: 
  Country: None (occurrence: None)
  Receive Date: 20081128
  Receipt Date: 20081119
  Transmission Date: 20090506
  Serious: Yes (Other)
  Sender: FDA-Public Use
  Company Number: PHHY2008JP29203

PATIENT

DRUGS (1)
  1. LUDIOMIL [Suspect]
     Route: 048

REACTIONS (1)
  - HALLUCINATION [None]
